FAERS Safety Report 8554840-8 (Version None)
Quarter: 2012Q3

REPORT INFORMATION
  Report Type: 
  Country: None (occurrence: None)
  Receive Date: 20120731
  Receipt Date: 20120709
  Transmission Date: 20120928
  Serious: No
  Sender: FDA-Public Use
  Company Number: US-ASTRAZENECA-2012SE46936

PATIENT
  Age: 61 Year
  Sex: Female

DRUGS (2)
  1. ENTOCORT EC [Suspect]
     Indication: COLITIS MICROSCOPIC
     Route: 048
  2. ENTOCORT EC [Suspect]
     Dosage: GENERIC
     Route: 048

REACTIONS (2)
  - FEELING ABNORMAL [None]
  - LACTOSE INTOLERANCE [None]
